FAERS Safety Report 4265732-7 (Version None)
Quarter: 2004Q1

REPORT INFORMATION
  Report Type: 
  Country: None (occurrence: None)
  Receive Date: 20040106
  Receipt Date: 20031224
  Transmission Date: 20041129
  Serious: Yes (Other)
  Sender: FDA-Public Use
  Company Number: US-JNJFOC-20031205345

PATIENT
  Age: 77 Year
  Sex: Female
  Weight: 58.9676 kg

DRUGS (10)
  1. INFLIXIMAB (INFLIXIMAB, RECOMBINANT) LYOPHILIZED POWDER [Suspect]
     Indication: RHEUMATOID ARTHRITIS
     Dosage: INTRAVENOUS
     Route: 042
     Dates: start: 20010202
  2. MULTIVITAMIN (MULTIVITAMINS) [Concomitant]
  3. FOSAMAX [Concomitant]
  4. ASPIRIN [Concomitant]
  5. CALCIUM (CALCIUM) [Concomitant]
  6. ARTHROTEC [Concomitant]
  7. LOTENSIN [Concomitant]
  8. CELEXA [Concomitant]
  9. FOLIC ACID [Concomitant]
  10. METHOTREXATE [Concomitant]

REACTIONS (1)
  - SQUAMOUS CELL CARCINOMA OF SKIN [None]
